FAERS Safety Report 10670957 (Version 2)
Quarter: 2015Q2

REPORT INFORMATION
  Report Type: Spontaneous
  Country: GB (occurrence: GB)
  Receive Date: 20141219
  Receipt Date: 20150528
  Transmission Date: 20150821
  Serious: Yes (Hospitalization)
  Sender: FDA-Public Use
  Company Number: 2668752

PATIENT
  Age: 51 Year
  Sex: Male
  Weight: 69.45 kg

DRUGS (4)
  1. EPIRUBICIN HYDROCHLORIDE. [Suspect]
     Active Substance: EPIRUBICIN HYDROCHLORIDE
     Indication: GASTRIC CANCER
     Dosage: MOST RECENT DOSE OF 550 MG ON 03-JUN-2013
     Route: 042
     Dates: start: 20121026
  2. AVASTIN [Suspect]
     Active Substance: BEVACIZUMAB
     Indication: GASTRIC CANCER
     Dosage: MOST RECENT DOSE OF 560 MG ADMINISTERED ON 03-JUN-2013
     Route: 042
     Dates: start: 20121026
  3. CISPLATIN. [Suspect]
     Active Substance: CISPLATIN
     Indication: GASTRIC CANCER
     Dosage: MOST RECENT DOSE OF 120 MG ON 03-JUN-2013
     Route: 042
     Dates: start: 20121026
  4. XELODA [Suspect]
     Active Substance: CAPECITABINE
     Indication: GASTRIC CANCER
     Dosage: MOST RECENT DOSE OF 52500 MG ON 03-JUN-2013
     Route: 048
     Dates: start: 20121026

REACTIONS (3)
  - Headache [Recovered/Resolved]
  - Dry eye [Unknown]
  - Pain in jaw [Unknown]

NARRATIVE: CASE EVENT DATE: 20130807
